FAERS Safety Report 14140726 (Version 2)
Quarter: 2017Q4

REPORT INFORMATION
  Report Type: Spontaneous
  Country: JP (occurrence: JP)
  Receive Date: 20171030
  Receipt Date: 20171204
  Transmission Date: 20180321
  Serious: Yes (Hospitalization, Other)
  Sender: FDA-Public Use
  Company Number: JP-TEVA-2017-JP-003397J

PATIENT
  Age: 40 Year
  Sex: Female

DRUGS (4)
  1. PREDNISOLONE TABLETS 5MG [Suspect]
     Active Substance: PREDNISOLONE
     Indication: RHEUMATOID ARTHRITIS
     Dosage: 15 MILLIGRAM DAILY;
     Route: 065
     Dates: start: 2011
  2. METHOTREXATE. [Concomitant]
     Active Substance: METHOTREXATE
     Route: 065
  3. METHOTREXATE. [Concomitant]
     Active Substance: METHOTREXATE
     Route: 065
     Dates: start: 2011
  4. METHOTREXATE. [Concomitant]
     Active Substance: METHOTREXATE
     Indication: RHEUMATOID ARTHRITIS
     Route: 065
     Dates: start: 2004

REACTIONS (3)
  - Liver abscess [Recovering/Resolving]
  - Rheumatoid arthritis [Unknown]
  - Large intestinal ulcer [Recovering/Resolving]
